FAERS Safety Report 22100666 (Version 1)
Quarter: 2023Q1

REPORT INFORMATION
  Report Type: Spontaneous
  Country: NL (occurrence: NL)
  Receive Date: 20230316
  Receipt Date: 20230316
  Transmission Date: 20230418
  Serious: Yes (Other)
  Sender: FDA-Public Use
  Company Number: None

PATIENT
  Sex: Male
  Weight: 80 kg

DRUGS (6)
  1. CIPROFLOXACIN [Suspect]
     Active Substance: CIPROFLOXACIN
     Indication: Cystitis
     Dosage: 1000 MILLIGRAM DAILY; BRAND NAME NOT SPECIFIED, 1 TABLET 2 TIMES A DAY,
     Dates: start: 20230221, end: 20230223
  2. CARBASPIRIN CALCIUM [Concomitant]
     Active Substance: CARBASPIRIN CALCIUM
     Indication: Product used for unknown indication
     Dosage: SACHET  100 MG (MILLIGRAM),  BRAND NAME NOT SPECIFIED
  3. EZETIMIBE [Concomitant]
     Active Substance: EZETIMIBE
     Indication: Product used for unknown indication
     Dosage: 10 MG (MILLIGRAM),  BRAND NAME NOT SPECIFIED
  4. LISINOPRIL [Concomitant]
     Active Substance: LISINOPRIL
     Indication: Product used for unknown indication
     Dosage: 5 MG (MILLIGRAM),  BRAND NAME NOT SPECIFIED
  5. METFORMIN HYDROCHLORIDE [Concomitant]
     Active Substance: METFORMIN HYDROCHLORIDE
     Indication: Product used for unknown indication
     Dosage: 500 MG (MILLIGRAM), BRAND NAME NOT SPECIFIED
  6. PRAVASTATIN [Concomitant]
     Active Substance: PRAVASTATIN
     Indication: Product used for unknown indication
     Dosage: 40 MG (MILLIGRAM),  BRAND NAME NOT SPECIFIED

REACTIONS (2)
  - Loss of consciousness [Recovered/Resolved]
  - Dizziness [Recovered/Resolved]
